FAERS Safety Report 16263001 (Version 1)
Quarter: 2019Q2

REPORT INFORMATION
  Report Type: Spontaneous
  Country: US (occurrence: US)
  Receive Date: 20190502
  Receipt Date: 20190502
  Transmission Date: 20190711
  Serious: Yes (Other)
  Sender: FDA-Public Use
  Company Number: US-009507513-1904USA011023

PATIENT
  Sex: Female

DRUGS (1)
  1. NEXPLANON [Suspect]
     Active Substance: ETONOGESTREL
     Dosage: 1 IMPLANT, 68 MG, 1 TIME PLACEMENT
     Route: 059
     Dates: start: 20181226

REACTIONS (1)
  - Device dislocation [Not Recovered/Not Resolved]
